FAERS Safety Report 9671211 (Version 3)
Quarter: 2013Q4

REPORT INFORMATION
  Report Type: Spontaneous
  Country: US (occurrence: US)
  Receive Date: 20131106
  Receipt Date: 20131211
  Transmission Date: 20140711
  Serious: No
  Sender: FDA-Public Use
  Company Number: US-PFIZER INC-2013297000

PATIENT
  Age: 81 Year
  Sex: Female
  Weight: 86.17 kg

DRUGS (2)
  1. LYRICA [Suspect]
     Indication: FIBROMYALGIA
     Dosage: 100 MG, 2X/DAY
     Route: 048
  2. LYRICA [Suspect]
     Indication: PERIPHERAL NERVE INJURY

REACTIONS (3)
  - Off label use [Unknown]
  - Feeling abnormal [Unknown]
  - Neuropathy peripheral [Unknown]
